FAERS Safety Report 5226777-3 (Version None)
Quarter: 2007Q1

REPORT INFORMATION
  Report Type: 
  Country: None (occurrence: None)
  Receive Date: 20070130
  Receipt Date: 20070116
  Transmission Date: 20070707
  Serious: Yes (Hospitalization)
  Sender: FDA-Public Use
  Company Number: POMP-10936

PATIENT
  Age: 40 Year
  Sex: Male
  Weight: 102 kg

DRUGS (5)
  1. MYOZYME [Suspect]
     Indication: GLYCOGEN STORAGE DISEASE TYPE II
     Dosage: 2 G Q2WKS IV
     Route: 042
     Dates: start: 20060615
  2. LISINOPRIL [Concomitant]
  3. NEBILET [Concomitant]
  4. PHYSIOTENS [Concomitant]
  5. INSULIN [Concomitant]

REACTIONS (1)
  - DEEP VEIN THROMBOSIS [None]
